FAERS Safety Report 7456109-1 (Version None)
Quarter: 2011Q2

REPORT INFORMATION
  Report Type: 
  Country: None (occurrence: None)
  Receive Date: 20110426
  Receipt Date: 20110408
  Transmission Date: 20111010
  Serious: Yes (Other)
  Sender: FDA-Public Use
  Company Number: 2011P1005886

PATIENT
  Age: 56 Year
  Sex: Female
  Weight: 81.6475 kg

DRUGS (10)
  1. FENTANYL [Suspect]
     Indication: PAIN
     Dosage: 1 PATCH;Q72H;TDER
     Route: 062
     Dates: start: 20101101
  2. PREVACID [Concomitant]
  3. CARAFATE [Concomitant]
  4. UNSPECIFIED STEROID (NO PREF. NAME) [Suspect]
     Dosage: X1;PARN
     Dates: start: 20110401, end: 20110401
  5. LORTAB [Concomitant]
  6. SOMA [Concomitant]
  7. PREMARIN [Concomitant]
  8. MORPHINE [Suspect]
     Indication: SENSATION OF PRESSURE
     Dosage: X1;PARN
     Route: 051
     Dates: start: 20110404, end: 20110404
  9. MORPHINE [Suspect]
     Indication: SPINAL DISORDER
     Dosage: X1;PARN
     Route: 051
     Dates: start: 20110404, end: 20110404
  10. VALIUM [Concomitant]

REACTIONS (23)
  - SENSATION OF PRESSURE [None]
  - DYSPHAGIA [None]
  - NAUSEA [None]
  - EUPHORIC MOOD [None]
  - DRUG EFFECT DECREASED [None]
  - PAIN [None]
  - FORMICATION [None]
  - VOMITING [None]
  - SPINAL DISORDER [None]
  - SOMNOLENCE [None]
  - LOCAL SWELLING [None]
  - FEELING DRUNK [None]
  - HYPOAESTHESIA [None]
  - INCORRECT DOSE ADMINISTERED BY DEVICE [None]
  - DIZZINESS [None]
  - WEIGHT DECREASED [None]
  - FEELING JITTERY [None]
  - MEMORY IMPAIRMENT [None]
  - CRYING [None]
  - DRUG EFFECT DELAYED [None]
  - INSOMNIA [None]
  - CARDIAC FLUTTER [None]
  - ARTERIOSPASM CORONARY [None]
